FAERS Safety Report 12721572 (Version 2)
Quarter: 2017Q1

REPORT INFORMATION
  Report Type: Spontaneous
  Country: US (occurrence: US)
  Receive Date: 20160907
  Receipt Date: 20170314
  Transmission Date: 20170428
  Serious: No
  Sender: FDA-Public Use
  Company Number: US-INCYTE CORPORATION-2016IN005446

PATIENT
  Age: 68 Year
  Sex: Female

DRUGS (1)
  1. JAKAFI [Suspect]
     Active Substance: RUXOLITINIB
     Indication: POLYCYTHAEMIA VERA
     Dosage: 10 MG, BID
     Route: 048
     Dates: start: 20160517

REACTIONS (3)
  - Increased tendency to bruise [Unknown]
  - Laceration [Unknown]
  - Contusion [Unknown]

NARRATIVE: CASE EVENT DATE: 20160517
